FAERS Safety Report 24346520 (Version 1)
Quarter: 2024Q3

REPORT INFORMATION
  Report Type: Report from Study
  Country: US (occurrence: US)
  Receive Date: 20240921
  Receipt Date: 20240921
  Transmission Date: 20241016
  Serious: Yes (Other)
  Sender: ABBVIE
  Company Number: US-ABBVIE-5927396

PATIENT
  Sex: Male

DRUGS (2)
  1. DUOPA [Suspect]
     Active Substance: CARBIDOPA\LEVODOPA
     Indication: Parkinson^s disease
     Route: 050
     Dates: start: 20171009
  2. DUOPA [Suspect]
     Active Substance: CARBIDOPA\LEVODOPA

REACTIONS (9)
  - Diaphragmatic rupture [Unknown]
  - Fall [Unknown]
  - Parkinson^s disease [Unknown]
  - Stoma site hypergranulation [Unknown]
  - Device placement issue [Unknown]
  - Gait inability [Unknown]
  - Stoma site discharge [Unknown]
  - On and off phenomenon [Unknown]
  - Device dislocation [Unknown]
